FAERS Safety Report 9159245 (Version 1)
Quarter: 2013Q1

REPORT INFORMATION
  Report Type: Spontaneous
  Country: US (occurrence: None)
  Receive Date: 20130213
  Receipt Date: 20130213
  Transmission Date: 20140127
  Serious: Yes (Other)
  Sender: FDA-Public Use
  Company Number: 2013/029

PATIENT
  Age: 47 Year
  Sex: 0
  Weight: 75 kg

DRUGS (5)
  1. TERBINEFINE (NO.REF NAME) [Suspect]
     Indication: TINEA INFECTION
     Route: 061
     Dates: start: 20130118, end: 20130120
  2. CLOBETASOL 0.05% [Concomitant]
  3. CLOBETASONE 0.05% [Concomitant]
  4. FLUCLOXACILLIN [Concomitant]
  5. FUCIDIN 2% [Concomitant]

REACTIONS (4)
  - Pruritus [None]
  - Rash [None]
  - Dermatitis [None]
  - Oedema peripheral [None]
